FAERS Safety Report 6426565-6 (Version None)
Quarter: 2009Q4

REPORT INFORMATION
  Report Type: 
  Country: None (occurrence: None)
  Receive Date: 20091030
  Receipt Date: 20091014
  Transmission Date: 20100525
  Serious: Yes (Disabling)
  Sender: FDA-Public Use
  Company Number: 000807

PATIENT
  Age: 43 Year
  Sex: Female

DRUGS (1)
  1. PROSTAGLANDIN E1 [Suspect]
     Indication: CYANOSIS

REACTIONS (12)
  - CEREBRAL INFARCTION [None]
  - CHLAMYDIAL INFECTION [None]
  - DISSEMINATED INTRAVASCULAR COAGULATION [None]
  - FINGER AMPUTATION [None]
  - GANGRENE [None]
  - HAEMORRHAGE [None]
  - HEART RATE INCREASED [None]
  - MYOCARDITIS [None]
  - RESPIRATORY RATE INCREASED [None]
  - SHOCK [None]
  - TOE AMPUTATION [None]
  - VOMITING [None]
